FAERS Safety Report 8991958 (Version 2)
Quarter: 2013Q2

REPORT INFORMATION
  Report Type: Spontaneous
  Country: GB (occurrence: GB)
  Receive Date: 20121231
  Receipt Date: 20130529
  Transmission Date: 20140414
  Serious: Yes (Hospitalization)
  Sender: FDA-Public Use
  Company Number: GB-009507513-1212GBR011148

PATIENT
  Age: 74 Year
  Sex: Female

DRUGS (16)
  1. ZISPIN SOLTAB [Suspect]
     Indication: DEPRESSION
     Dosage: 45 MG, QD (ONCE NIGHTLY)
     Route: 048
     Dates: start: 20121106
  2. ZISPIN SOLTAB [Suspect]
     Dosage: 30 MG, QD (ONCE NIGHTLY)
     Route: 048
     Dates: start: 2012
  3. ASPIRIN [Concomitant]
  4. ADCAL (CALCIUM CARBONATE) [Concomitant]
  5. BISOPROLOL [Concomitant]
  6. EZETIMIBE [Concomitant]
  7. GABAPENTIN [Concomitant]
  8. NITROGLYCERIN [Concomitant]
  9. ISOSORBIDE MONONITRATE [Concomitant]
  10. MORPHINE [Concomitant]
  11. ACETAMINOPHEN [Concomitant]
  12. QUININE [Concomitant]
  13. RANITIDINE [Concomitant]
  14. SERETIDE [Concomitant]
  15. SPIRONOLACTONE [Concomitant]
  16. VENTOLIN (ALBUTEROL SULFATE) [Concomitant]

REACTIONS (1)
  - Restless legs syndrome [Not Recovered/Not Resolved]
